FAERS Safety Report 9526153 (Version 1)
Quarter: 2013Q3

REPORT INFORMATION
  Report Type: Report from Study
  Country: US (occurrence: US)
  Receive Date: 20130916
  Receipt Date: 20130916
  Transmission Date: 20140515
  Serious: Yes (Death)
  Sender: FDA-Public Use
  Company Number: US-ROCHE-1274191

PATIENT
  Age: 41 Year
  Sex: Female

DRUGS (3)
  1. HERCEPTIN [Suspect]
     Indication: BREAST CANCER
     Dosage: ADJUVANT
     Route: 065
  2. PARAPLATIN [Concomitant]
     Dosage: ADJUVANT
     Route: 065
  3. TAXOTERE [Concomitant]
     Dosage: ADJUVANT
     Route: 065

REACTIONS (1)
  - Neutropenic sepsis [Fatal]
